FAERS Safety Report 13510645 (Version 2)
Quarter: 2017Q2

REPORT INFORMATION
  Report Type: Report from Study
  Country: US (occurrence: US)
  Receive Date: 20170503
  Receipt Date: 20170511
  Transmission Date: 20170830
  Serious: Yes (Hospitalization)
  Sender: FDA-Public Use
  Company Number: US-ACTELION-A-US2017-153203

PATIENT
  Age: 77 Year
  Sex: Female

DRUGS (11)
  1. TYVASO [Concomitant]
     Active Substance: TREPROSTINIL
  2. ATENOLOL. [Concomitant]
     Active Substance: ATENOLOL
     Dosage: 25 MG, QD
  3. CALCIUM [Concomitant]
     Active Substance: CALCIUM
     Dosage: UNK UNK, QD
  4. OPSUMIT [Suspect]
     Active Substance: MACITENTAN
     Indication: PULMONARY HYPERTENSION
     Dosage: 10 MG, QD
     Route: 048
     Dates: start: 20160811
  5. XARELTO [Concomitant]
     Active Substance: RIVAROXABAN
     Dosage: 20 MG, QD
  6. MELOXICAM. [Concomitant]
     Active Substance: MELOXICAM
     Dosage: UNK
  7. METOLAZONE. [Concomitant]
     Active Substance: METOLAZONE
     Dosage: 2.5 MG, UNK
  8. LOSARTAN POTASSIUM. [Concomitant]
     Active Substance: LOSARTAN POTASSIUM
     Dosage: 25 MG, QD
  9. ALENDRONATE [Concomitant]
     Active Substance: ALENDRONATE SODIUM
  10. LOVASTATIN. [Concomitant]
     Active Substance: LOVASTATIN
  11. CALCIUM CARBONATE. [Concomitant]
     Active Substance: CALCIUM CARBONATE

REACTIONS (3)
  - Throat cancer [Not Recovered/Not Resolved]
  - Tonsil cancer [Not Recovered/Not Resolved]
  - Lymphoma [Not Recovered/Not Resolved]
